FAERS Safety Report 7449108-7 (Version None)
Quarter: 2011Q2

REPORT INFORMATION
  Report Type: 
  Country: None (occurrence: None)
  Receive Date: 20110502
  Receipt Date: 20110301
  Transmission Date: 20111010
  Serious: Yes (Other)
  Sender: FDA-Public Use
  Company Number: US-BAYER-2011-019790

PATIENT
  Age: 8 Year
  Sex: Female
  Weight: 28.118 kg

DRUGS (6)
  1. CLONIDINE [Concomitant]
     Dosage: 0.3 MG, QD, AT BEDTIME
  2. KEPPRA [Concomitant]
  3. RISPERDAL [Concomitant]
     Dosage: UNK
  4. ROBINUL [Concomitant]
     Dosage: 2 MG, TID
  5. MIRALAX [Concomitant]
  6. BRONKAID [Suspect]
     Dosage: 2 DF, ONCE
     Route: 048
     Dates: start: 20110301

REACTIONS (3)
  - LOSS OF CONSCIOUSNESS [None]
  - VOMITING [None]
  - AGITATION [None]
